FAERS Safety Report 13935489 (Version 1)
Quarter: 2017Q3

REPORT INFORMATION
  Report Type: Spontaneous
  Country: JP (occurrence: JP)
  Receive Date: 20170905
  Receipt Date: 20170905
  Transmission Date: 20171127
  Serious: Yes (Other)
  Sender: FDA-Public Use
  Company Number: PHJP2017JP027226

PATIENT
  Age: 56 Year
  Sex: Female

DRUGS (1)
  1. ZOLEDRONATE [Suspect]
     Active Substance: ZOLEDRONIC ACID
     Indication: METASTASES TO BONE
     Dosage: UNK
     Route: 065

REACTIONS (5)
  - Exposed bone in jaw [Unknown]
  - Osteonecrosis of jaw [Unknown]
  - Swelling face [Unknown]
  - Tooth loss [Unknown]
  - Fistula [Unknown]

NARRATIVE: CASE EVENT DATE: 201505
